FAERS Safety Report 9007890 (Version 1)
Quarter: 2013Q1

REPORT INFORMATION
  Report Type: Spontaneous
  Country: US (occurrence: US)
  Receive Date: 20130111
  Receipt Date: 20130111
  Transmission Date: 20140127
  Serious: Yes (Life-Threatening)
  Sender: FDA-Public Use
  Company Number: US-009507513-0901USA02204

PATIENT
  Age: 50 Year
  Sex: Female
  Weight: 82.55 kg

DRUGS (1)
  1. SINGULAIR [Suspect]
     Indication: MULTIPLE ALLERGIES
     Dosage: 10 MG, QD (1 PILL PER DAY)
     Route: 048
     Dates: start: 20080221, end: 20080724

REACTIONS (7)
  - Affect lability [Unknown]
  - Crying [Unknown]
  - Emotional disorder [Unknown]
  - Feeling abnormal [Unknown]
  - Feeling of despair [Unknown]
  - Suicidal ideation [Unknown]
  - Treatment noncompliance [Unknown]
